FAERS Safety Report 5126250-7 (Version None)
Quarter: 2006Q4

REPORT INFORMATION
  Report Type: 
  Country: None (occurrence: None)
  Receive Date: 20061012
  Receipt Date: 20060929
  Transmission Date: 20070319
  Serious: Yes (Hospitalization)
  Sender: FDA-Public Use
  Company Number: MX-ABBOTT-06P-107-0345309-00

PATIENT
  Sex: Male
  Weight: 55.5 kg

DRUGS (7)
  1. KALETRA [Suspect]
     Indication: HIV TEST POSITIVE
     Dosage: 400 MG/100 MG BID
     Route: 048
     Dates: start: 20060721
  2. RANITIDINE [Concomitant]
     Indication: PROPHYLAXIS
     Route: 048
     Dates: start: 20060815, end: 20060823
  3. ISONIACIDE [Concomitant]
     Indication: PROPHYLAXIS
     Route: 048
     Dates: start: 20060815, end: 20060815
  4. TRIMETROPRIM SULFAMETOXAZOL [Concomitant]
     Indication: PROPHYLAXIS
     Route: 048
     Dates: start: 20060815, end: 20060815
  5. CLINDAMICINE [Concomitant]
     Indication: INFECTION
     Route: 042
     Dates: start: 20060815, end: 20060815
  6. CEFAROXINE [Concomitant]
     Indication: INFECTION
     Route: 048
     Dates: start: 20060815, end: 20060823
  7. LAMIVUDINE + ZIDOVUDINE [Concomitant]
     Route: 048
     Dates: start: 20060721

REACTIONS (1)
  - CELLULITIS ORBITAL [None]
